FAERS Safety Report 9527548 (Version 1)
Quarter: 2013Q1

REPORT INFORMATION
  Report Type: Spontaneous
  Country: US (occurrence: None)
  Receive Date: 20130312
  Receipt Date: 20130312
  Transmission Date: 20140127
  Serious: No
  Sender: FDA-Public Use
  Company Number: TH-2013-00132

PATIENT
  Sex: Female
  Weight: 77 kg

DRUGS (1)
  1. EGRIFTA [Suspect]
     Indication: LIPODYSTROPHY ACQUIRED
     Dosage: 1 IN 1 D
     Route: 058
     Dates: start: 20111004, end: 20120901

REACTIONS (3)
  - Malaise [None]
  - Myalgia [None]
  - Arthralgia [None]
